FAERS Safety Report 9352063 (Version 2)
Quarter: 2013Q3

REPORT INFORMATION
  Report Type: Report from Study
  Country: US (occurrence: US)
  Receive Date: 20130617
  Receipt Date: 20130726
  Transmission Date: 20140515
  Serious: Yes (Hospitalization, Other)
  Sender: FDA-Public Use
  Company Number: US-ABBOTT-13P-163-1102522-00

PATIENT
  Age: 51 Year
  Sex: Female

DRUGS (19)
  1. HUMIRA [Suspect]
     Indication: CROHN^S DISEASE
     Dates: start: 20130316
  2. TRAZODONE [Concomitant]
     Indication: INSOMNIA
     Dosage: AT BEDTIME
  3. PROTONIX [Concomitant]
     Indication: DYSPEPSIA
  4. PROZAC [Concomitant]
     Indication: DEPRESSION
  5. PERCOCET [Concomitant]
     Indication: ABDOMINAL PAIN
     Dosage: 10/325 EVERY 6 HOURS AS NEEDED FOR PAIN
  6. PERCOCET [Concomitant]
     Indication: CROHN^S DISEASE
  7. B12 [Concomitant]
     Indication: CROHN^S DISEASE
     Dosage: SHOT
  8. DICYCLOMINE [Concomitant]
     Indication: ABDOMINAL PAIN
     Dosage: ONE EVERY 6 HOURS AS NEEDED
  9. DICYCLOMINE [Concomitant]
     Indication: CROHN^S DISEASE
  10. POTASSIUM CHLORIDE [Concomitant]
     Indication: CROHN^S DISEASE
  11. ZOFRAN [Concomitant]
     Indication: NAUSEA
  12. XANAX [Concomitant]
     Indication: ANXIETY
     Dosage: ONE IN AM AND ONE AT NIGHT
  13. HYDROCHLOROTHIAZIDE [Concomitant]
     Indication: BLOOD PRESSURE
     Dates: start: 20130607
  14. HYDROCHLOROTHIAZIDE [Concomitant]
  15. PREDNISONE [Concomitant]
     Indication: PRODUCT USED FOR UNKNOWN INDICATION
     Dates: start: 20130603
  16. PREDNISONE [Concomitant]
     Dates: start: 20130703
  17. METOPROLOL [Concomitant]
     Indication: PRODUCT USED FOR UNKNOWN INDICATION
     Dates: start: 20130603
  18. METOPROLOL [Concomitant]
  19. PENTASA [Concomitant]
     Indication: CROHN^S DISEASE
     Dosage: 4 TABS TWICE A DAY TO SUPPORT HUMIRA

REACTIONS (12)
  - Dysstasia [Unknown]
  - Retching [Unknown]
  - Crohn^s disease [Recovered/Resolved]
  - Hypertension [Unknown]
  - Hypertension [Unknown]
  - Crohn^s disease [Recovered/Resolved]
  - Nausea [Recovering/Resolving]
  - Gastritis [Unknown]
  - Asthenia [Unknown]
  - Fatigue [Unknown]
  - Crohn^s disease [Recovered/Resolved]
  - Diarrhoea [Recovered/Resolved]
